FAERS Safety Report 7089597-3 (Version None)
Quarter: 2010Q4

REPORT INFORMATION
  Report Type: 
  Country: None (occurrence: None)
  Receive Date: 20101108
  Receipt Date: 20101028
  Transmission Date: 20110411
  Serious: Yes (Other)
  Sender: FDA-Public Use
  Company Number: US-ASTRAZENECA-2007UW24076

PATIENT
  Age: 65 Year
  Sex: Female
  Weight: 95.3 kg

DRUGS (3)
  1. ARIMIDEX [Suspect]
     Indication: BREAST CANCER
     Route: 048
     Dates: start: 20070101
  2. LISINOPRIL AND HYDROCHLOROTHIAZIDE [Concomitant]
  3. LOVASTATIN [Concomitant]

REACTIONS (4)
  - ARTHRODESIS [None]
  - DISCOMFORT [None]
  - DIZZINESS [None]
  - FALL [None]
